FAERS Safety Report 23695819 (Version 1)
Quarter: 2024Q2

REPORT INFORMATION
  Report Type: Spontaneous
  Country: GB (occurrence: GB)
  Receive Date: 20240402
  Receipt Date: 20240402
  Transmission Date: 20240715
  Serious: Yes (Other)
  Sender: FDA-Public Use
  Company Number: None

PATIENT
  Age: 55 Year
  Sex: Female
  Weight: 86 kg

DRUGS (11)
  1. INDAPAMIDE [Suspect]
     Active Substance: INDAPAMIDE
     Dosage: EACH MORNING
     Route: 065
     Dates: start: 20240304
  2. ESTRADERM [Concomitant]
     Active Substance: ESTRADIOL
     Dosage: APPLY
     Dates: start: 20240104
  3. LANSOPRAZOLE [Concomitant]
     Active Substance: LANSOPRAZOLE
     Dates: start: 20230728
  4. SERTRALINE [Concomitant]
     Active Substance: SERTRALINE HYDROCHLORIDE
     Dates: start: 20230911
  5. NITROGLYCERIN [Concomitant]
     Active Substance: NITROGLYCERIN
     Dosage: APPLY 2.5CM TO ANAL CANAL EVERY 12 HOURS UNTIL ...
     Route: 065
     Dates: start: 20240227
  6. AMLODIPINE [Concomitant]
     Active Substance: AMLODIPINE BESYLATE
     Dates: start: 20240118, end: 20240205
  7. ANUSOL NOS [Concomitant]
     Active Substance: BALSAM PERU\BENZYL BENZOATE\BISMUTH HYDROXIDE\BISMUTH SUBGALLATE\HYDROCORTISONE ACETATE\ZINC OXIDE
     Dosage: USE AS DIRECTED
     Dates: start: 20240118, end: 20240124
  8. ANODESYN [Concomitant]
     Indication: Analgesic therapy
     Dosage: TIME INTERVAL: AS NECESSARY: APPLY
     Dates: start: 20240227, end: 20240305
  9. LIDOCAINE [Concomitant]
     Active Substance: LIDOCAINE
     Indication: Analgesic therapy
     Dosage: TIME INTERVAL: AS NECESSARY: APPLY PRIOR TO OPENIN...
     Dates: start: 20240229
  10. DOXAZOSIN [Concomitant]
     Active Substance: DOXAZOSIN MESYLATE
     Dosage: IF TOLERATED...
     Dates: start: 20240318
  11. LISINOPRIL [Concomitant]
     Active Substance: LISINOPRIL
     Dates: start: 20240215, end: 20240318

REACTIONS (2)
  - Joint swelling [Unknown]
  - Urine output decreased [Unknown]
